FAERS Safety Report 4999724-7 (Version None)
Quarter: 2006Q2

REPORT INFORMATION
  Report Type: 
  Country: None (occurrence: None)
  Receive Date: 20060511
  Receipt Date: 20060504
  Transmission Date: 20061013
  Serious: Yes (Death, Other)
  Sender: FDA-Public Use
  Company Number: PR-MERCK-0605USA01385

PATIENT
  Age: 77 Year
  Sex: Female

DRUGS (1)
  1. VIOXX [Suspect]
     Indication: PAIN
     Route: 048

REACTIONS (7)
  - AMNESIA [None]
  - CELLULITIS [None]
  - DEATH [None]
  - INFARCTION [None]
  - MYOCARDIAL INFARCTION [None]
  - OVERDOSE [None]
  - SYNCOPE [None]
